FAERS Safety Report 9807307 (Version 2)
Quarter: 2014Q1

REPORT INFORMATION
  Report Type: Spontaneous
  Country: ES (occurrence: ES)
  Receive Date: 20140110
  Receipt Date: 20140110
  Transmission Date: 20141002
  Serious: Yes (Hospitalization)
  Sender: FDA-Public Use
  Company Number: ES-ACCORD-021230

PATIENT
  Age: 35 Year
  Sex: Male

DRUGS (4)
  1. ALLOPURINOL/ALLOPURINOL SODIUM [Suspect]
     Indication: HYPERURICAEMIA
  2. LEVOTHYROXINE [Concomitant]
  3. HYDROCORTISONE [Concomitant]
     Dosage: AQUEOUS-TESONA 20 MG/DAY
  4. TESTOSTERONE [Concomitant]
     Dosage: INJECTABLE TESTOSTERONE SOLUTION FORTNIGHTLY

REACTIONS (1)
  - Drug reaction with eosinophilia and systemic symptoms [Recovering/Resolving]
